FAERS Safety Report 5802244-0 (Version None)
Quarter: 2008Q3

REPORT INFORMATION
  Report Type: 
  Country: None (occurrence: None)
  Receive Date: 20080702
  Receipt Date: 20080623
  Transmission Date: 20090109
  Serious: Yes (Hospitalization)
  Sender: FDA-Public Use
  Company Number: 2008JP000245

PATIENT
  Age: 45 Year
  Sex: Female
  Weight: 39.5 kg

DRUGS (14)
  1. TACROLIMUS [Suspect]
     Indication: LUPUS NEPHRITIS
     Dosage: 3 MG, /D, ORAL
     Route: 048
     Dates: start: 20070809, end: 20070918
  2. PREDONINE(PREDNISOLONE) [Suspect]
     Indication: LUPUS NEPHRITIS
     Dosage: 16 MG, /D, ORAL; 2O MG, /D, ORAL; 15 MG,/D, ORAL;  12.5 MG,/D, ORAL; 10 MG, /D, ORAL
     Route: 048
     Dates: start: 20040907, end: 20070918
  3. PREDONINE(PREDNISOLONE) [Suspect]
     Indication: LUPUS NEPHRITIS
     Dosage: 16 MG, /D, ORAL; 2O MG, /D, ORAL; 15 MG,/D, ORAL;  12.5 MG,/D, ORAL; 10 MG, /D, ORAL
     Route: 048
     Dates: start: 20071030, end: 20071112
  4. PREDONINE(PREDNISOLONE) [Suspect]
     Indication: LUPUS NEPHRITIS
     Dosage: 16 MG, /D, ORAL; 2O MG, /D, ORAL; 15 MG,/D, ORAL;  12.5 MG,/D, ORAL; 10 MG, /D, ORAL
     Route: 048
     Dates: start: 20071113, end: 20071203
  5. PREDONINE(PREDNISOLONE) [Suspect]
     Indication: LUPUS NEPHRITIS
     Dosage: 16 MG, /D, ORAL; 2O MG, /D, ORAL; 15 MG,/D, ORAL;  12.5 MG,/D, ORAL; 10 MG, /D, ORAL
     Route: 048
     Dates: start: 20071204, end: 20071217
  6. PREDONINE(PREDNISOLONE) [Suspect]
     Indication: LUPUS NEPHRITIS
     Dosage: 16 MG, /D, ORAL; 2O MG, /D, ORAL; 15 MG,/D, ORAL;  12.5 MG,/D, ORAL; 10 MG, /D, ORAL
     Route: 048
     Dates: start: 20071218
  7. PREDNISOLONE [Suspect]
     Indication: LUPUS NEPHRITIS
     Dosage: 20 MG, /D
     Dates: start: 20070919, end: 20071029
  8. ROPION (FLURBIPROFEN AXETIL) F [Suspect]
     Indication: SPINAL COMPRESSION FRACTURE
     Dosage: 5 ML, /D
     Dates: start: 20070928, end: 20071008
  9. LIPITOR [Concomitant]
  10. ROXATIDINE ACETATE HCL [Concomitant]
  11. BONALON (ALENDRONIC ACID) [Concomitant]
  12. SULPERAZON (SULBACTAM) INJECTION [Concomitant]
  13. ALBUMIN (ALBUMIN HUMAN) INJECTION [Concomitant]
  14. ELCITONIN (ELCATONIN) INJECTION [Concomitant]

REACTIONS (10)
  - ANAL HAEMORRHAGE [None]
  - BLOOD GLUCOSE INCREASED [None]
  - BLOOD LACTATE DEHYDROGENASE INCREASED [None]
  - GAMMA-GLUTAMYLTRANSFERASE INCREASED [None]
  - HYPOALBUMINAEMIA [None]
  - OSTEOPOROSIS [None]
  - PLATELET COUNT DECREASED [None]
  - PNEUMONIA [None]
  - SPINAL COMPRESSION FRACTURE [None]
  - WHITE BLOOD CELL COUNT INCREASED [None]
